FAERS Safety Report 15613674 (Version 2)
Quarter: 2019Q1

REPORT INFORMATION
  Report Type: Spontaneous
  Country: AT (occurrence: AT)
  Receive Date: 20181113
  Receipt Date: 20190116
  Transmission Date: 20190417
  Serious: Yes (Death, Other)
  Sender: FDA-Public Use
  Company Number: AT-ALLERGAN-1853145US

PATIENT
  Age: 60 Year
  Sex: Male

DRUGS (2)
  1. AZTREONAM. [Suspect]
     Active Substance: AZTREONAM
     Indication: PRODUCT USED FOR UNKNOWN INDICATION
     Dosage: UNK
     Route: 065
     Dates: start: 2018
  2. CEFTAZIDIME;AVIBACTAM - BP [Suspect]
     Active Substance: AVIBACTAM SODIUM\CEFTAZIDIME
     Indication: PRODUCT USED FOR UNKNOWN INDICATION
     Dosage: UNK
     Route: 065
     Dates: start: 2018

REACTIONS (2)
  - Pathogen resistance [Fatal]
  - Drug ineffective [Fatal]

NARRATIVE: CASE EVENT DATE: 2018
